FAERS Safety Report 17166278 (Version 1)
Quarter: 2019Q4

REPORT INFORMATION
  Report Type: Spontaneous
  Country: DE (occurrence: DE)
  Receive Date: 20191217
  Receipt Date: 20191217
  Transmission Date: 20200122
  Serious: Yes (Congenital Anomaly, Other)
  Sender: FDA-Public Use
  Company Number: DE-MYLANLABS-2019M1123328

PATIENT
  Age: 1 Year
  Sex: Female
  Weight: 3.39 kg

DRUGS (3)
  1. FOLSAEURE [Concomitant]
     Active Substance: FOLIC ACID
     Indication: PROPHYLAXIS OF NEURAL TUBE DEFECT
     Dosage: 0.8 [MG/D ]/ 0.4-0.8 MG/D
     Route: 064
  2. AZATHIOPRINE. [Suspect]
     Active Substance: AZATHIOPRINE
     Indication: CROHN^S DISEASE
     Dosage: 100 [MG/D (2 X 50) ] 2 SEPARATED DOSES
     Route: 064
  3. HUMIRA [Suspect]
     Active Substance: ADALIMUMAB
     Indication: CROHN^S DISEASE
     Dosage: 40 [MG/D (ALLE 2 WOCHEN) ]
     Route: 064

REACTIONS (3)
  - Encephalocele [Recovered/Resolved with Sequelae]
  - Infantile haemangioma [Unknown]
  - Foetal exposure during pregnancy [Unknown]
